FAERS Safety Report 11366039 (Version 5)
Quarter: 2016Q4

REPORT INFORMATION
  Report Type: Spontaneous
  Country: US (occurrence: US)
  Receive Date: 20150811
  Receipt Date: 20161215
  Transmission Date: 20170206
  Serious: Yes (Hospitalization, Other)
  Sender: FDA-Public Use
  Company Number: US-BAYER-2015-391620

PATIENT
  Age: 39 Year
  Sex: Male
  Weight: 96.14 kg

DRUGS (12)
  1. AVELOX [Suspect]
     Active Substance: MOXIFLOXACIN HYDROCHLORIDE
     Indication: SINUSITIS
     Dosage: 400 MG, UNK
     Dates: start: 20090901, end: 20090913
  2. AVELOX [Suspect]
     Active Substance: MOXIFLOXACIN HYDROCHLORIDE
     Indication: SINUSITIS
     Dosage: 400 MG, QD
     Dates: start: 20120916, end: 20120925
  3. AVELOX [Suspect]
     Active Substance: MOXIFLOXACIN HYDROCHLORIDE
     Indication: SINUSITIS
     Dosage: 1 DF, QD
     Route: 048
     Dates: end: 20140303
  4. AVELOX [Suspect]
     Active Substance: MOXIFLOXACIN HYDROCHLORIDE
     Indication: SINUSITIS
     Dosage: 400 MG, QD
     Dates: start: 20110916, end: 20110929
  5. LEVAQUIN [Concomitant]
     Active Substance: LEVOFLOXACIN
     Dosage: 500 MG, QD
     Route: 048
     Dates: end: 20140303
  6. AVELOX [Suspect]
     Active Substance: MOXIFLOXACIN HYDROCHLORIDE
     Indication: SINUSITIS
     Dosage: 400 MG, QD
     Dates: start: 20120712, end: 20120721
  7. PROLEX DH [GUAIFENESIN,HYDROCODONE BITARTRATE] [Concomitant]
     Indication: COUGH
     Dosage: 5 MG-300 MG/5ML,1 TSP Q4H PRN
  8. CIPRO [Suspect]
     Active Substance: CIPROFLOXACIN HYDROCHLORIDE
     Indication: INFECTION
     Dosage: 500 MG, BID
     Dates: start: 20150611, end: 20150624
  9. AVELOX [Suspect]
     Active Substance: MOXIFLOXACIN HYDROCHLORIDE
     Indication: SINUSITIS
     Dosage: 400 MG, QD
     Dates: start: 20121113, end: 20121122
  10. BIAXIN [Concomitant]
     Active Substance: CLARITHROMYCIN
     Dosage: 500 MG, BID
  11. OXYCODONE [Concomitant]
     Active Substance: OXYCODONE
     Indication: PROCEDURAL PAIN
     Dosage: UNK
     Dates: start: 201411, end: 201412
  12. PANNAZ [Concomitant]
     Active Substance: CHLORPHENIRAMINE MALEATE\METHSCOPOLAMINE NITRATE\PSEUDOEPHEDRINE HYDROCHLORIDE
     Dosage: 90/8/2.5,

REACTIONS (18)
  - Neuropathy peripheral [None]
  - Injury [None]
  - Anxiety [None]
  - Emotional distress [None]
  - Activities of daily living impaired [None]
  - Chest pain [None]
  - Sinusitis [None]
  - Discomfort [None]
  - Bronchitis [None]
  - Nasal congestion [None]
  - Neuropathy peripheral [None]
  - Hypoaesthesia [Not Recovered/Not Resolved]
  - Anhedonia [None]
  - Dyspnoea [None]
  - Fatigue [None]
  - Neuropathy peripheral [Not Recovered/Not Resolved]
  - Hypoaesthesia [None]
  - Pain [None]

NARRATIVE: CASE EVENT DATE: 2010
